FAERS Safety Report 14840569 (Version 2)
Quarter: 2020Q3

REPORT INFORMATION
  Report Type: Report from Study
  Country: NL (occurrence: NL)
  Receive Date: 20180503
  Receipt Date: 20200707
  Transmission Date: 20201102
  Serious: Yes (Hospitalization, Other)
  Sender: FDA-Public Use
  Company Number: NL-ROCHE-2115764

PATIENT

DRUGS (4)
  1. RITUXIMAB. [Suspect]
     Active Substance: RITUXIMAB
     Indication: SYSTEMIC LUPUS ERYTHEMATOSUS
     Dosage: AT WEEKS 0 AND 2
     Route: 042
  2. PREDNISONE. [Concomitant]
     Active Substance: PREDNISONE
     Dosage: STARTED AT 1MG/KG/DAY (MAXIMUM 60MG/DAY).?TAPERED TAPERED TOWARDS MAINTENANCE DOSE OF { = 7.5MG/DAY.
     Route: 048
  3. BELIMUMAB [Suspect]
     Active Substance: BELIMUMAB
     Indication: SYSTEMIC LUPUS ERYTHEMATOSUS
     Dosage: AT WEEKS 4, 6, 8 AND THEN EVERY 4 WEEKS
     Route: 065
  4. MYCOPHENOLATE MOFETIL. [Suspect]
     Active Substance: MYCOPHENOLATE MOFETIL
     Indication: SYSTEMIC LUPUS ERYTHEMATOSUS
     Route: 065

REACTIONS (7)
  - Gastrointestinal infection [Unknown]
  - Escherichia infection [Unknown]
  - Hyperkalaemia [Unknown]
  - Cholelithiasis [Unknown]
  - Haemophilus infection [Unknown]
  - Gastroenteritis viral [Unknown]
  - Metapneumovirus infection [Unknown]
